FAERS Safety Report 9154361 (Version 1)
Quarter: 2013Q1

REPORT INFORMATION
  Report Type: Spontaneous
  Country: FR (occurrence: FR)
  Receive Date: 20130311
  Receipt Date: 20130311
  Transmission Date: 20140127
  Serious: Yes (Hospitalization)
  Sender: FDA-Public Use
  Company Number: FR-PFIZER INC-2012267521

PATIENT
  Age: 45 Year
  Sex: Male

DRUGS (10)
  1. FLUOROURACILE PFIZER [Suspect]
     Indication: OROPHARYNGEAL CANCER
     Dosage: 1250 MG, 1X/DAY
     Route: 042
     Dates: start: 20120823, end: 20120827
  2. CISPLATIN [Concomitant]
     Indication: OROPHARYNGEAL CANCER
     Dosage: 126 MG, SINGLE
     Route: 042
     Dates: start: 20120823
  3. TAXOTERE [Concomitant]
     Indication: OROPHARYNGEAL CANCER
     Dosage: 124 MG, SINGLE
     Route: 042
     Dates: start: 20120823
  4. THERALENE [Concomitant]
     Dosage: UNK
  5. AOTAL [Concomitant]
     Dosage: UNK
  6. VITAMIN B1 AND B6 [Concomitant]
     Dosage: UNK
  7. VALIUM [Concomitant]
     Dosage: UNK
  8. OXYCONTIN [Concomitant]
     Dosage: UNK
  9. OXYNORM [Concomitant]
     Dosage: UNK
  10. STILNOX [Concomitant]
     Dosage: UNK

REACTIONS (3)
  - Ejection fraction decreased [Recovered/Resolved]
  - Hypotension [Recovered/Resolved]
  - Tachycardia [Recovered/Resolved]
